FAERS Safety Report 19866763 (Version 2)
Quarter: 2022Q2

REPORT INFORMATION
  Report Type: Spontaneous
  Country: ES (occurrence: ES)
  Receive Date: 20210921
  Receipt Date: 20220407
  Transmission Date: 20220721
  Serious: Yes (Death, Other)
  Sender: FDA-Public Use
  Company Number: None

PATIENT
  Age: 5 Year
  Sex: Male

DRUGS (6)
  1. GANCICLOVIR [Suspect]
     Active Substance: GANCICLOVIR
     Indication: Cytomegalovirus infection
     Route: 042
     Dates: start: 20210602, end: 20210630
  2. GANCICLOVIR [Suspect]
     Active Substance: GANCICLOVIR
     Indication: Human herpesvirus 6 infection
  3. HYDRALAZINE HYDROCHLORIDE [Suspect]
     Active Substance: HYDRALAZINE HYDROCHLORIDE
     Indication: Product used for unknown indication
     Route: 042
     Dates: start: 20210526, end: 20210613
  4. SULFAMETHOXAZOLE\TRIMETHOPRIM [Suspect]
     Active Substance: SULFAMETHOXAZOLE\TRIMETHOPRIM
     Indication: Product used for unknown indication
     Route: 048
     Dates: start: 20210412, end: 20210607
  5. VALGANCICLOVIR [Suspect]
     Active Substance: VALGANCICLOVIR
     Indication: Product used for unknown indication
     Route: 048
     Dates: start: 20210331, end: 20210602
  6. ESMOLOL HYDROCHLORIDE [Suspect]
     Active Substance: ESMOLOL HYDROCHLORIDE
     Indication: Product used for unknown indication
     Route: 041
     Dates: start: 20210518, end: 20210620

REACTIONS (6)
  - Hepatotoxicity [Recovered/Resolved]
  - Hyperbilirubinaemia [Recovered/Resolved]
  - Hepatomegaly [Unknown]
  - Product use in unapproved indication [Unknown]
  - Product use issue [Unknown]
  - Interstitial lung disease [Fatal]

NARRATIVE: CASE EVENT DATE: 20210602
